FAERS Safety Report 7997078-5 (Version None)
Quarter: 2011Q4

REPORT INFORMATION
  Report Type: 
  Country: None (occurrence: None)
  Receive Date: 20111221
  Receipt Date: 20111216
  Transmission Date: 20120403
  Serious: Yes (Death, Hospitalization, Other)
  Sender: FDA-Public Use
  Company Number: US-BAYER-201011340NA

PATIENT
  Age: 77 Year
  Sex: Male
  Weight: 72.562 kg

DRUGS (44)
  1. TRASYLOL [Suspect]
     Indication: CORONARY ARTERY BYPASS
     Dates: start: 20070307
  2. LIDOCAINE [Concomitant]
     Dosage: 1 AMPOULE
     Dates: start: 20070307
  3. HEPARIN [Concomitant]
     Dosage: UNK
     Route: 042
     Dates: start: 20070305
  4. AMICAR [Concomitant]
     Dosage: UNK
     Dates: start: 20070307
  5. IBUPROFEN (ADVIL) [Concomitant]
     Dosage: 200 MG, PRN
     Route: 048
     Dates: end: 20070305
  6. BETA BLOCKING AGENTS AND VASODILATORS [Concomitant]
  7. XANAX [Concomitant]
     Dosage: 0.5 MG, UNK
     Route: 048
     Dates: start: 20070305
  8. AMLODIPINE [Concomitant]
     Dosage: 5 MG, UNK
     Route: 048
     Dates: start: 20070305
  9. LOVENOX [Concomitant]
     Dosage: 80 MG, UNK
     Route: 058
     Dates: start: 20070305
  10. MANNITOL [Concomitant]
     Dosage: UNK
     Route: 042
     Dates: start: 20070305
  11. AMIODARONE HCL [Concomitant]
     Dosage: UNK
     Dates: start: 20070307
  12. EPINEPHRINE [Concomitant]
     Dosage: DRIP AFTER RESURGERY
     Route: 041
  13. ANCEF [Concomitant]
     Dosage: UNK
     Dates: start: 20070307
  14. RED BLOOD CELLS [Concomitant]
     Dosage: 8 U, UNK
     Route: 042
     Dates: start: 20070307
  15. SUX [Concomitant]
     Dosage: UNK
     Dates: start: 20070307
  16. VANCOMYCIN HYCHLORIDE [Concomitant]
  17. MULTI-VITAMIN [Concomitant]
     Dosage: DAILY
     Route: 048
     Dates: end: 20070305
  18. ALIMENTARY TRACT AND METABOLISM [Concomitant]
  19. DOPAMINE HCL [Concomitant]
     Dosage: DRIP AFTER RESURGERY
     Route: 041
  20. SIMVASTATIN [Concomitant]
     Dosage: 10 MG, UNK
     Route: 048
     Dates: start: 20070305
  21. LASIX [Concomitant]
     Dosage: UNK
  22. VISIPAQUE [Concomitant]
     Indication: CATHETERISATION CARDIAC
     Dosage: 100 ML, UNK
     Dates: start: 20070226
  23. METOPROLOL TARTRATE [Concomitant]
     Dosage: 25MG IN THE EVENING
     Route: 048
     Dates: end: 20070305
  24. CIPROFLOXACIN [Concomitant]
  25. ROCEPHIN [Concomitant]
  26. DARVOCET-N 50 [Concomitant]
     Dosage: UNK
     Route: 048
     Dates: start: 20070305
  27. FRESH FROZEN PLASMA [Concomitant]
     Dosage: 4 U, UNK
     Dates: start: 20070307
  28. EPINEPHRINE [Concomitant]
     Dosage: 1 AMPULE TWICE
     Dates: start: 20070307
  29. LISINOPRIL [Concomitant]
     Dosage: 10 MG, UNK
     Route: 048
     Dates: start: 20070305, end: 20070307
  30. AMBIEN [Concomitant]
     Dosage: 5 MG, UNK
     Route: 048
     Dates: start: 20070305
  31. PLATELETS [Concomitant]
     Dosage: 1 U, UNK
     Route: 042
     Dates: start: 20070307
  32. PROTAMINE SULFATE [Concomitant]
     Dosage: UNK
     Dates: start: 20070307
  33. METOPROLOL TARTRATE [Concomitant]
     Dosage: 50MG IN THE MORNING
     Route: 048
     Dates: end: 20070305
  34. GLUCOSAMINE [GLUCOSAMINE SULFATE] [Concomitant]
     Dosage: UNK UNK, QD
     Route: 048
     Dates: end: 20070305
  35. LOPRESSOR [Concomitant]
     Dosage: 5 MG, UNK
     Route: 042
     Dates: start: 20070305
  36. ANCEF [Concomitant]
     Dosage: 1 G, UNK
     Route: 042
     Dates: start: 20070305
  37. ACCUPRIL [Concomitant]
     Dosage: 10 MG, BID
     Route: 048
     Dates: end: 20070305
  38. PRILOSEC [Concomitant]
     Dosage: 20 MG, HS
     Route: 048
     Dates: end: 20070305
  39. LOVASTATIN [Concomitant]
     Dosage: 20 MG, HS
     Route: 048
     Dates: end: 20070305
  40. DIFLUCAN [Concomitant]
  41. DARVON [Concomitant]
     Dosage: 65 MG, UNK
     Dates: end: 20070305
  42. RANEXA [Concomitant]
     Dosage: 500 MG, UNK
     Route: 048
     Dates: end: 20070305
  43. VERSED [Concomitant]
     Dosage: UNK
     Dates: start: 20070307
  44. PANCURONIUM [Concomitant]
     Dosage: UNK
     Dates: start: 20070307

REACTIONS (14)
  - DEATH [None]
  - RENAL INJURY [None]
  - DEPRESSION [None]
  - ANXIETY [None]
  - ORGAN FAILURE [None]
  - RENAL FAILURE [None]
  - CARDIAC DISORDER [None]
  - FEAR [None]
  - UNEVALUABLE EVENT [None]
  - ANHEDONIA [None]
  - CEREBROVASCULAR ACCIDENT [None]
  - RENAL IMPAIRMENT [None]
  - PAIN [None]
  - INJURY [None]
